FAERS Safety Report 12374207 (Version 1)
Quarter: 2016Q2

REPORT INFORMATION
  Report Type: Not Available
  Country: CH (occurrence: CH)
  Receive Date: 20160517
  Receipt Date: 20160517
  Transmission Date: 20160815
  Serious: Yes (Hospitalization)
  Sender: FDA-Public Use
  Company Number: CH-BEH-2016062499

PATIENT
  Age: 0 Day
  Sex: Female
  Weight: 2.78 kg

DRUGS (1)
  1. PRIVIGEN [Suspect]
     Active Substance: HUMAN IMMUNOGLOBULIN G
     Indication: GUILLAIN-BARRE SYNDROME
     Route: 064
     Dates: start: 20150730, end: 20150802

REACTIONS (12)
  - Neonatal respiratory distress syndrome [Recovered/Resolved]
  - Hereditary haemolytic anaemia [Recovered/Resolved]
  - Jaundice acholuric [Recovered/Resolved]
  - Hypotonia neonatal [Recovered/Resolved]
  - Hypoaesthesia [Recovered/Resolved]
  - Bradycardia [Recovered/Resolved]
  - Premature baby [Recovered/Resolved]
  - Jaundice neonatal [Recovered/Resolved]
  - Sepsis [Recovered/Resolved]
  - Late metabolic acidosis of newborn [Recovered/Resolved]
  - Cyanosis neonatal [Recovered/Resolved]
  - Foetal exposure during pregnancy [Unknown]

NARRATIVE: CASE EVENT DATE: 20151207
